FAERS Safety Report 6996971-X (Version None)
Quarter: 2010Q3

REPORT INFORMATION
  Report Type: 
  Country: None (occurrence: None)
  Receive Date: 20100918
  Receipt Date: 20090921
  Transmission Date: 20110219
  Serious: No
  Sender: FDA-Public Use
  Company Number: US-WYE-H10770409

PATIENT
  Sex: Female
  Weight: 56.75 kg

DRUGS (3)
  1. PRISTIQ [Suspect]
     Indication: DEPRESSION
     Route: 048
     Dates: start: 20090705, end: 20090819
  2. PRISTIQ [Suspect]
     Route: 048
     Dates: start: 20090820, end: 20090824
  3. RESTORIL [Concomitant]

REACTIONS (13)
  - ASTHENIA [None]
  - CONDITION AGGRAVATED [None]
  - CONSTIPATION [None]
  - DIARRHOEA [None]
  - DIZZINESS [None]
  - DRUG WITHDRAWAL SYNDROME [None]
  - DRY MOUTH [None]
  - HYPERHIDROSIS [None]
  - INSOMNIA [None]
  - MALAISE [None]
  - MYOCLONUS [None]
  - NAUSEA [None]
  - PARAESTHESIA [None]
